FAERS Safety Report 9169600 (Version 2)
Quarter: 2013Q1

REPORT INFORMATION
  Report Type: Spontaneous
  Country: US (occurrence: US)
  Receive Date: 20130318
  Receipt Date: 20130326
  Transmission Date: 20140127
  Serious: No
  Sender: FDA-Public Use
  Company Number: US-009507513-2012SP014686

PATIENT
  Sex: 0

DRUGS (1)
  1. CLARITIN [Suspect]
     Indication: HYPERSENSITIVITY
     Dosage: 10 MG, UNKNOWN
     Route: 048

REACTIONS (3)
  - Headache [Unknown]
  - Nausea [Unknown]
  - Dry mouth [Unknown]
